FAERS Safety Report 14245075 (Version 1)
Quarter: 2017Q4

REPORT INFORMATION
  Report Type: Spontaneous
  Country: JP (occurrence: JP)
  Receive Date: 20171202
  Receipt Date: 20171202
  Transmission Date: 20180321
  Serious: Yes (Other)
  Sender: FDA-Public Use
  Company Number: JP-ACCORD-061544

PATIENT
  Age: 64 Year
  Sex: Male

DRUGS (2)
  1. CISPLATIN. [Suspect]
     Active Substance: CISPLATIN
     Indication: OESOPHAGEAL CANCER METASTATIC
     Dosage: ON DAYS 1 AND 29
  2. FLUOROURACIL. [Suspect]
     Active Substance: FLUOROURACIL
     Indication: OESOPHAGEAL CANCER METASTATIC
     Dosage: FROM DAYS 1 TO 4 AND DAYS 29 TO 32

REACTIONS (2)
  - Oesophageal ulcer [Recovered/Resolved]
  - Cytomegalovirus oesophagitis [Recovered/Resolved]
